FAERS Safety Report 11539477 (Version 1)
Quarter: 2015Q3

REPORT INFORMATION
  Report Type: Spontaneous
  Country: US (occurrence: US)
  Receive Date: 20150923
  Receipt Date: 20150923
  Transmission Date: 20151125
  Serious: No
  Sender: FDA-Public Use
  Company Number: US-DRREDDYS-USA/USA/14/0044045

PATIENT
  Sex: Female
  Weight: 8.61 kg

DRUGS (3)
  1. INFANTS ADVIL [Suspect]
     Active Substance: IBUPROFEN
     Indication: PYREXIA
     Route: 048
     Dates: end: 20141001
  2. AMOXICILLIN. [Suspect]
     Active Substance: AMOXICILLIN
     Indication: EAR INFECTION
     Route: 048
     Dates: start: 20140903, end: 20140909
  3. INFANTS ADVIL [Suspect]
     Active Substance: IBUPROFEN
     Indication: OROPHARYNGEAL PAIN

REACTIONS (1)
  - Fungal infection [Recovered/Resolved]
